FAERS Safety Report 13481419 (Version 2)
Quarter: 2017Q2

REPORT INFORMATION
  Report Type: Spontaneous
  Country: ES (occurrence: ES)
  Receive Date: 20170425
  Receipt Date: 20170516
  Transmission Date: 20170830
  Serious: Yes (Other)
  Sender: FDA-Public Use
  Company Number: ES-BIOGEN-2017BI00391209

PATIENT
  Age: 50 Year
  Sex: Female

DRUGS (1)
  1. TECFIDERA [Suspect]
     Active Substance: DIMETHYL FUMARATE
     Indication: MULTIPLE SCLEROSIS
     Route: 048
     Dates: start: 20150119, end: 20170401

REACTIONS (1)
  - Invasive ductal breast carcinoma [Unknown]

NARRATIVE: CASE EVENT DATE: 20170416
